FAERS Safety Report 24191163 (Version 5)
Quarter: 2024Q4

REPORT INFORMATION
  Report Type: Spontaneous
  Country: JP (occurrence: JP)
  Receive Date: 20240808
  Receipt Date: 20241215
  Transmission Date: 20250114
  Serious: Yes (Other)
  Sender: AMGEN
  Company Number: JP-KYOWAKIRIN-2024KK018474

PATIENT
  Age: 57 Year
  Sex: Female

DRUGS (112)
  1. PEGFILGRASTIM [Suspect]
     Active Substance: PEGFILGRASTIM
     Indication: Colony stimulating factor therapy
     Dosage: 3.6 MG, 1X/3 WEEKS, G-LASTA SUBCUTANEOUS INJECTION 3.6 MG WAS ADMINISTERED ON DAY 3 OF EACH TREATMEN
     Route: 058
     Dates: start: 20210310, end: 20210623
  2. TRASTUZUMAB [Concomitant]
     Active Substance: TRASTUZUMAB
     Indication: Invasive ductal breast carcinoma
     Dosage: UNK, 1X/3 WEEKS
     Route: 041
     Dates: start: 20210308
  3. TRASTUZUMAB [Concomitant]
     Active Substance: TRASTUZUMAB
     Dosage: UNK, 1X/3 WEEKS
     Route: 041
     Dates: start: 20210726
  4. TRASTUZUMAB [Concomitant]
     Active Substance: TRASTUZUMAB
     Dosage: UNK, 1X/3 WEEKS
     Route: 041
     Dates: start: 20210816
  5. TRASTUZUMAB [Concomitant]
     Active Substance: TRASTUZUMAB
     Dosage: UNK, 1X/3 WEEKS
     Route: 041
     Dates: start: 20210906
  6. TRASTUZUMAB [Concomitant]
     Active Substance: TRASTUZUMAB
     Dosage: UNK, 1X/3 WEEKS
     Route: 041
     Dates: start: 20210927
  7. TRASTUZUMAB [Concomitant]
     Active Substance: TRASTUZUMAB
     Dosage: UNK, 1X/3 WEEKS
     Route: 041
     Dates: start: 20211018
  8. TRASTUZUMAB [Concomitant]
     Active Substance: TRASTUZUMAB
     Dosage: UNK, 1X/3 WEEKS
     Route: 041
     Dates: start: 20211108
  9. PERTUZUMAB [Concomitant]
     Active Substance: PERTUZUMAB
     Indication: Invasive ductal breast carcinoma
     Dosage: UNK, 1X/3 WEEKS
     Route: 041
     Dates: start: 20210308
  10. PERTUZUMAB [Concomitant]
     Active Substance: PERTUZUMAB
     Dosage: UNK, 1X/3 WEEKS
     Route: 041
     Dates: start: 20210726
  11. PERTUZUMAB [Concomitant]
     Active Substance: PERTUZUMAB
     Dosage: UNK, 1X/3 WEEKS
     Route: 041
     Dates: start: 20210816
  12. PERTUZUMAB [Concomitant]
     Active Substance: PERTUZUMAB
     Dosage: UNK, 1X/3 WEEKS
     Route: 041
     Dates: start: 20210906
  13. PERTUZUMAB [Concomitant]
     Active Substance: PERTUZUMAB
     Dosage: UNK, 1X/3 WEEKS
     Route: 041
     Dates: start: 20210927
  14. PERTUZUMAB [Concomitant]
     Active Substance: PERTUZUMAB
     Dosage: UNK, 1X/3 WEEKS
     Route: 041
     Dates: start: 20211018
  15. PERTUZUMAB [Concomitant]
     Active Substance: PERTUZUMAB
     Dosage: UNK, 1X/3 WEEKS
     Route: 041
     Dates: start: 20211108
  16. DOCETAXEL [Concomitant]
     Active Substance: DOCETAXEL
     Indication: Invasive ductal breast carcinoma
     Dosage: 105 MG, 1X/3 WEEKS
     Route: 041
     Dates: start: 20210308
  17. DOCETAXEL [Concomitant]
     Active Substance: DOCETAXEL
     Dosage: 105 MG, 1X/3 WEEKS
     Route: 041
     Dates: start: 20210329
  18. DOCETAXEL [Concomitant]
     Active Substance: DOCETAXEL
     Dosage: 105 MG, 1X/3 WEEKS
     Route: 041
     Dates: start: 20210419
  19. DOCETAXEL [Concomitant]
     Active Substance: DOCETAXEL
     Dosage: 105 MG, 1X/3 WEEKS
     Route: 041
     Dates: start: 20210510
  20. DOCETAXEL [Concomitant]
     Active Substance: DOCETAXEL
     Dosage: 105 MG, 1X/3 WEEKS
     Route: 041
     Dates: start: 20210531
  21. DOCETAXEL [Concomitant]
     Active Substance: DOCETAXEL
     Dosage: 105 MG, 1X/3 WEEKS
     Route: 041
     Dates: start: 20210621
  22. PERJETA [Concomitant]
     Active Substance: PERTUZUMAB
     Indication: Invasive ductal breast carcinoma
     Dosage: 840 MG, SPEED:300ML/H
     Route: 065
     Dates: start: 20210308
  23. PERJETA [Concomitant]
     Active Substance: PERTUZUMAB
     Dosage: 420 MG,SPEED:500ML/H
     Route: 065
     Dates: start: 20210329
  24. PERJETA [Concomitant]
     Active Substance: PERTUZUMAB
     Dosage: 420 MG,SPEED:500ML/H
     Route: 065
     Dates: start: 20210419
  25. PERJETA [Concomitant]
     Active Substance: PERTUZUMAB
     Dosage: 420 MG,SPEED:500ML/H
     Route: 065
     Dates: start: 20210510
  26. PERJETA [Concomitant]
     Active Substance: PERTUZUMAB
     Dosage: 420 MG,SPEED:500ML/H
     Route: 065
     Dates: start: 20210531
  27. PERJETA [Concomitant]
     Active Substance: PERTUZUMAB
     Dosage: 420 MG,SPEED:500ML/H
     Route: 065
     Dates: start: 20210621
  28. PERJETA [Concomitant]
     Active Substance: PERTUZUMAB
     Dosage: 420 MG,SPEED:500ML/H
     Route: 065
     Dates: start: 20210726
  29. PERJETA [Concomitant]
     Active Substance: PERTUZUMAB
     Dosage: 420 MG,SPEED:500ML/H
     Route: 065
     Dates: start: 20210816
  30. PERJETA [Concomitant]
     Active Substance: PERTUZUMAB
     Dosage: 420 MG,SPEED:500ML/H
     Route: 065
     Dates: start: 20211018
  31. PERJETA [Concomitant]
     Active Substance: PERTUZUMAB
     Dosage: 420 MG,SPEED:500ML/H
     Route: 065
     Dates: start: 20211108
  32. HERCEPTIN [Concomitant]
     Active Substance: TRASTUZUMAB
     Indication: Invasive ductal breast carcinoma
     Dosage: 352 MG,SPEED:170ML/H
     Route: 065
     Dates: start: 20210308
  33. HERCEPTIN [Concomitant]
     Active Substance: TRASTUZUMAB
     Dosage: 264 MG,SPEED:500ML/H
     Route: 065
     Dates: start: 20210329
  34. HERCEPTIN [Concomitant]
     Active Substance: TRASTUZUMAB
     Dosage: 264 MG,SPEED:500ML/H
     Route: 065
     Dates: start: 20210419
  35. HERCEPTIN [Concomitant]
     Active Substance: TRASTUZUMAB
     Dosage: 264 MG,SPEED:500ML/H
     Route: 065
     Dates: start: 20210510
  36. HERCEPTIN [Concomitant]
     Active Substance: TRASTUZUMAB
     Dosage: 264 MG,SPEED:500ML/H
     Route: 065
     Dates: start: 20210531
  37. HERCEPTIN [Concomitant]
     Active Substance: TRASTUZUMAB
     Dosage: 264 MG,SPEED:500ML/H
     Route: 065
     Dates: start: 20210621
  38. HERCEPTIN [Concomitant]
     Active Substance: TRASTUZUMAB
     Dosage: 261.6 MG,SPEED:500ML/H
     Route: 065
     Dates: start: 20210726
  39. HERCEPTIN [Concomitant]
     Active Substance: TRASTUZUMAB
     Dosage: 261.6 MG,SPEED:500ML/H
     Route: 065
     Dates: start: 20210816
  40. HERCEPTIN [Concomitant]
     Active Substance: TRASTUZUMAB
     Dosage: 237 MG,SPEED:500ML/H
     Route: 065
     Dates: start: 20210906
  41. HERCEPTIN [Concomitant]
     Active Substance: TRASTUZUMAB
     Dosage: 237 MG,SPEED:500ML/H
     Route: 065
     Dates: start: 20210927
  42. HERCEPTIN [Concomitant]
     Active Substance: TRASTUZUMAB
     Dosage: 237 MG,SPEED:500ML/H
     Route: 065
     Dates: start: 20211018
  43. HERCEPTIN [Concomitant]
     Active Substance: TRASTUZUMAB
     Dosage: 237 MG,SPEED:500ML/H
     Route: 065
     Dates: start: 20211108
  44. DEXAMETHASONE SODIUM PHOSPHATE [Concomitant]
     Active Substance: DEXAMETHASONE SODIUM PHOSPHATE
     Indication: Invasive ductal breast carcinoma
     Dosage: 6.6 MG,SPEED:500ML/H
     Route: 065
     Dates: start: 20210308
  45. DEXAMETHASONE SODIUM PHOSPHATE [Concomitant]
     Active Substance: DEXAMETHASONE SODIUM PHOSPHATE
     Dosage: 6.6 MG,SPEED:500ML/H
     Route: 065
     Dates: start: 20210329
  46. DEXAMETHASONE SODIUM PHOSPHATE [Concomitant]
     Active Substance: DEXAMETHASONE SODIUM PHOSPHATE
     Dosage: 6.6 MG,SPEED:500ML/H
     Route: 065
     Dates: start: 20210419
  47. DEXAMETHASONE SODIUM PHOSPHATE [Concomitant]
     Active Substance: DEXAMETHASONE SODIUM PHOSPHATE
     Dosage: 6.6 MG,SPEED:500ML/H
     Route: 065
     Dates: start: 20210510
  48. DEXAMETHASONE SODIUM PHOSPHATE [Concomitant]
     Active Substance: DEXAMETHASONE SODIUM PHOSPHATE
     Dosage: 6.6 MG,SPEED:500ML/H
     Route: 065
     Dates: start: 20210531
  49. DEXAMETHASONE SODIUM PHOSPHATE [Concomitant]
     Active Substance: DEXAMETHASONE SODIUM PHOSPHATE
     Dosage: 6.6 MG,SPEED:500ML/H
     Route: 065
     Dates: start: 20210621
  50. LOXOPROFEN SODIUM [Concomitant]
     Active Substance: LOXOPROFEN SODIUM
     Indication: Product used for unknown indication
     Dosage: 3 DF, TID,AFTER EACH MEAL
     Route: 065
     Dates: start: 20210224, end: 20210404
  51. LOXOPROFEN SODIUM [Concomitant]
     Active Substance: LOXOPROFEN SODIUM
     Dosage: 3 DF, TID,AFTER EACH MEAL
     Route: 065
     Dates: start: 20210407, end: 20210815
  52. LOXOPROFEN SODIUM [Concomitant]
     Active Substance: LOXOPROFEN SODIUM
     Dosage: 1 DF, BID,AFTER BREAKFAST AND DINNER
     Route: 065
     Dates: start: 20210818, end: 20210915
  53. CALONAL [Concomitant]
     Active Substance: ACETAMINOPHEN
     Indication: Product used for unknown indication
     Dosage: 700 MG, QID,AFTER EACH MEAL AND BEFORE BED
     Route: 065
     Dates: start: 20210224, end: 20210328
  54. CALONAL [Concomitant]
     Active Substance: ACETAMINOPHEN
     Dosage: 500 MG, TID, AFTER EACH MEAL
     Route: 065
     Dates: start: 20210331, end: 20210404
  55. CALONAL [Concomitant]
     Active Substance: ACETAMINOPHEN
     Dosage: 500 MG, QID,AFTER EACH MEAL AND BEFORE BED
     Route: 065
     Dates: start: 20210916, end: 20210918
  56. OXYCODONE HYDROCHLORIDE [Concomitant]
     Active Substance: OXYCODONE HYDROCHLORIDE
     Indication: Product used for unknown indication
     Dosage: 1 DF, BID, AFTER BREAKFAST AND DINNER
     Route: 065
     Dates: start: 20210224, end: 20210404
  57. OXYCODONE HYDROCHLORIDE [Concomitant]
     Active Substance: OXYCODONE HYDROCHLORIDE
     Dosage: 1 DF, BID, AFTER BREAKFAST AND DINNER
     Route: 065
     Dates: start: 20210407, end: 20210915
  58. OXYCODONE HYDROCHLORIDE [Concomitant]
     Active Substance: OXYCODONE HYDROCHLORIDE
     Dosage: 2 DF, BID, AFTER BREAKFAST AND DINNER
     Route: 065
     Dates: start: 20210916, end: 20210920
  59. OXYCODONE HYDROCHLORIDE [Concomitant]
     Active Substance: OXYCODONE HYDROCHLORIDE
     Dosage: 3 DF, BID, AFTER BREAKFAST AND DINNER
     Route: 065
     Dates: start: 20210921, end: 20210923
  60. OXYCODONE HYDROCHLORIDE [Concomitant]
     Active Substance: OXYCODONE HYDROCHLORIDE
     Dosage: 1 DF, BID, AFTER BREAKFAST AND DINNER
     Route: 065
     Dates: start: 20211001, end: 20211006
  61. OXYCODONE HYDROCHLORIDE [Concomitant]
     Active Substance: OXYCODONE HYDROCHLORIDE
     Dosage: 1 DF, BID, AFTER BREAKFAST AND DINNER
     Route: 065
     Dates: start: 20211018, end: 20211031
  62. OXYCODONE HYDROCHLORIDE [Concomitant]
     Active Substance: OXYCODONE HYDROCHLORIDE
     Dosage: 1 DF, BID, AFTER BREAKFAST AND DINNER
     Route: 065
     Dates: start: 20211108
  63. Oxinorm [Concomitant]
     Indication: Pain
     Dosage: 2.5 MG, QD, WHEN IN PAIN
     Route: 065
     Dates: start: 20210224, end: 20210413
  64. Oxinorm [Concomitant]
     Dosage: 2.5 MG, QD, WHEN IN PAIN
     Route: 065
     Dates: start: 20210419, end: 20210608
  65. Oxinorm [Concomitant]
     Dosage: 2.5 MG, QD, WHEN IN PAIN
     Route: 065
     Dates: start: 20210709, end: 20210804
  66. Oxinorm [Concomitant]
     Dosage: 2.5 MG, QD,WHEN IN PAIN
     Route: 065
     Dates: start: 20210927, end: 20211026
  67. Novamin [Concomitant]
     Indication: Nausea
     Dosage: 1 DF, TID,BEFOR EACH MEAL
     Route: 065
     Dates: start: 20210224, end: 20210328
  68. Novamin [Concomitant]
     Dosage: 1 DF,WHEN HAVING FEELING QUEASY (WHEN HAVING FEELING QUEASY-LIKE SYMPTOMS)
     Route: 065
     Dates: start: 20210329, end: 20210417
  69. Novamin [Concomitant]
     Dosage: 1 DF,WHEN HAVING FEELING QUEASY (WHEN HAVING FEELING QUEASY-LIKE SYMPTOMS)
     Dates: start: 20210419, end: 20210428
  70. MAGNESIUM OXIDE [Concomitant]
     Active Substance: MAGNESIUM OXIDE
     Indication: Product used for unknown indication
     Dosage: 1 DF, TID,AFTER EACH MEAL
     Route: 065
     Dates: start: 20210224, end: 20210328
  71. OMEPRAZOLE [Concomitant]
     Active Substance: OMEPRAZOLE
     Indication: Product used for unknown indication
     Dosage: 1 DF, QD,AFTER BREAKFAST
     Route: 065
     Dates: start: 20210224, end: 20210404
  72. OMEPRAZOLE [Concomitant]
     Active Substance: OMEPRAZOLE
     Dosage: 1 DF, QD,AFTER BREAKFAST
     Route: 065
     Dates: start: 20210407, end: 20210905
  73. DECADRON [Concomitant]
     Active Substance: DEXAMETHASONE
     Indication: Oedema
     Dosage: 1 DF, BID,AFTER BREAKFAST AND LUNCH
     Route: 065
     Dates: start: 20210308, end: 20210309
  74. DECADRON [Concomitant]
     Active Substance: DEXAMETHASONE
     Indication: Skin disorder
     Dosage: 1 DF, BID,AFTER BREAKFAST AND LUNCH
     Route: 065
     Dates: start: 20210329, end: 20210330
  75. DECADRON [Concomitant]
     Active Substance: DEXAMETHASONE
     Dosage: 1 DF, BID,AFTER BREAKFAST AND LUNCH
     Route: 065
     Dates: start: 20210419, end: 20210420
  76. DECADRON [Concomitant]
     Active Substance: DEXAMETHASONE
     Dosage: 1 DF, BID,AFTER BREAKFAST AND LUNCH
     Route: 065
     Dates: start: 20210510, end: 20210511
  77. DECADRON [Concomitant]
     Active Substance: DEXAMETHASONE
     Dosage: 1 DF, BID,AFTER BREAKFAST AND LUNCH
     Route: 065
     Dates: start: 20210531, end: 20210601
  78. DECADRON [Concomitant]
     Active Substance: DEXAMETHASONE
     Dosage: 1 DF, BID,AFTER BREAKFAST AND LUNCH
     Route: 065
     Dates: start: 20210621, end: 20210622
  79. URSODIOL [Concomitant]
     Active Substance: URSODIOL
     Indication: Product used for unknown indication
     Dosage: 1 DF, TID,AFTER EACH MEAL
     Route: 065
     Dates: start: 20210308, end: 20210404
  80. URSODIOL [Concomitant]
     Active Substance: URSODIOL
     Dosage: 1 DF, TID,AFTER EACH MEAL
     Route: 065
     Dates: start: 20210407, end: 20210914
  81. URSODIOL [Concomitant]
     Active Substance: URSODIOL
     Dosage: 2 DF, TID,AFTER EACH MEAL
     Route: 065
     Dates: start: 20210915, end: 20210930
  82. URSODIOL [Concomitant]
     Active Substance: URSODIOL
     Dosage: 1 DF, TID,AFTER EACH MEAL
     Route: 065
     Dates: start: 20211001, end: 20211006
  83. URSODIOL [Concomitant]
     Active Substance: URSODIOL
     Dosage: 1 DF, TID,AFTER EACH MEAL
     Route: 065
     Dates: start: 20211018, end: 20211031
  84. URSODIOL [Concomitant]
     Active Substance: URSODIOL
     Dosage: 1 DF, TID,AFTER EACH MEAL
     Route: 065
     Dates: start: 20211108
  85. CHLORPHENIRAMINE MALEATE\SCOPOLAMINE HYDROBROMIDE [Concomitant]
     Active Substance: CHLORPHENIRAMINE MALEATE\SCOPOLAMINE HYDROBROMIDE
     Indication: Nausea
     Dosage: 1 DF,WHEN HAVING FEELING QUEASY (WHEN HAVING FEELING QUEASY-LIKE SYMPTOMS)
     Route: 065
     Dates: start: 20210315, end: 20210324
  86. CHLORPHENIRAMINE MALEATE\SCOPOLAMINE HYDROBROMIDE [Concomitant]
     Active Substance: CHLORPHENIRAMINE MALEATE\SCOPOLAMINE HYDROBROMIDE
     Dosage: 1 DF,WHEN HAVING FEELING QUEASY (WHEN HAVING FEELING QUEASY-LIKE SYMPTOMS)
     Route: 065
     Dates: start: 20210329, end: 20210416
  87. CHLORPHENIRAMINE MALEATE\SCOPOLAMINE HYDROBROMIDE [Concomitant]
     Active Substance: CHLORPHENIRAMINE MALEATE\SCOPOLAMINE HYDROBROMIDE
     Dosage: 1 DF,WHEN HAVING FEELING QUEASY (WHEN HAVING FEELING QUEASY-LIKE SYMPTOMS)
     Route: 065
     Dates: start: 20210419, end: 20210428
  88. MIYA-BM [Concomitant]
     Active Substance: CLOSTRIDIUM BUTYRICUM SPORES STRAIN M-55
     Indication: Product used for unknown indication
     Dosage: 1 G, TID,AFTER EACH MEAL
     Route: 065
     Dates: start: 20210315, end: 20210404
  89. MIYA-BM [Concomitant]
     Active Substance: CLOSTRIDIUM BUTYRICUM SPORES STRAIN M-55
     Dosage: 1 G, TID,AFTER EACH MEAL
     Route: 065
     Dates: start: 20210407, end: 20210914
  90. MIYA-BM [Concomitant]
     Active Substance: CLOSTRIDIUM BUTYRICUM SPORES STRAIN M-55
     Dosage: 2 G, TID,AFTER EACH MEAL
     Route: 065
     Dates: start: 20210915, end: 20210930
  91. MIYA-BM [Concomitant]
     Active Substance: CLOSTRIDIUM BUTYRICUM SPORES STRAIN M-55
     Dosage: 1 G, TID,AFTER EACH MEAL
     Route: 065
     Dates: start: 20211001, end: 20211006
  92. MIYA-BM [Concomitant]
     Active Substance: CLOSTRIDIUM BUTYRICUM SPORES STRAIN M-55
     Dosage: 1 G, TID,AFTER EACH MEAL
     Route: 065
     Dates: start: 20211018, end: 20211031
  93. MIYA-BM [Concomitant]
     Active Substance: CLOSTRIDIUM BUTYRICUM SPORES STRAIN M-55
     Dosage: 1 G, TID,AFTER EACH MEAL
     Route: 065
     Dates: start: 20211108
  94. MOSAPRIDE [Concomitant]
     Active Substance: MOSAPRIDE
     Indication: Product used for unknown indication
     Dosage: 1 DF, TID,AFTER EACH MEAL
     Route: 065
     Dates: start: 20210510, end: 20210914
  95. MOSAPRIDE [Concomitant]
     Active Substance: MOSAPRIDE
     Dosage: 2 DF, TID,AFTER EACH MEAL
     Route: 065
     Dates: start: 20210915, end: 20210916
  96. MOSAPRIDE [Concomitant]
     Active Substance: MOSAPRIDE
     Dosage: 1 DF, TID,AFTER EACH MEAL
     Route: 065
     Dates: start: 20210917, end: 20210920
  97. MOSAPRIDE [Concomitant]
     Active Substance: MOSAPRIDE
     Dosage: 2 DF, TID, AFTER EACH MEAL
     Route: 065
     Dates: start: 20210921, end: 20210930
  98. MOSAPRIDE [Concomitant]
     Active Substance: MOSAPRIDE
     Dosage: 1 DF, TID,AFTER EACH MEA
     Route: 065
     Dates: start: 20211001, end: 20211006
  99. MOSAPRIDE [Concomitant]
     Active Substance: MOSAPRIDE
     Dosage: 1 DF, TID,AFTER EACH MEAL
     Route: 065
     Dates: start: 20211018, end: 20211031
  100. MOSAPRIDE [Concomitant]
     Active Substance: MOSAPRIDE
     Dosage: 1 DF, TID,AFTER EACH MEAL
     Route: 065
     Dates: start: 20211108
  101. LOPERAMIDE HYDROCHLORIDE [Concomitant]
     Active Substance: LOPERAMIDE HYDROCHLORIDE
     Indication: Diarrhoea
     Dosage: 1 MG,WHEN HAVING DIARRHEA
     Route: 065
     Dates: start: 20210329, end: 20210417
  102. FUROSEMIDE [Concomitant]
     Active Substance: FUROSEMIDE
     Indication: Product used for unknown indication
     Dosage: 20 MG, QD,AFTER BREAKFAST
     Route: 065
     Dates: start: 20210709, end: 20210711
  103. FUROSEMIDE [Concomitant]
     Active Substance: FUROSEMIDE
     Dosage: 60 MG, QD,AFTER BREAKFAST
     Route: 065
     Dates: start: 20210712, end: 20210815
  104. FUROSEMIDE [Concomitant]
     Active Substance: FUROSEMIDE
     Dosage: 20 MG, QD,AFTER BREAKFAST
     Route: 065
     Dates: start: 20210816, end: 20210914
  105. FUROSEMIDE [Concomitant]
     Active Substance: FUROSEMIDE
     Dosage: 40 MG, QD,AFTER BREAKFAST
     Route: 065
     Dates: start: 20210915, end: 20210920
  106. FUROSEMIDE [Concomitant]
     Active Substance: FUROSEMIDE
     Dosage: 60 MG, QD,AFTER BREAKFAST
     Route: 065
     Dates: start: 20210921, end: 20210921
  107. FUROSEMIDE [Concomitant]
     Active Substance: FUROSEMIDE
     Dosage: 40 MG, QD,AFTER BREAKFAST
     Route: 065
     Dates: start: 20210922, end: 20210926
  108. FUROSEMIDE [Concomitant]
     Active Substance: FUROSEMIDE
     Dosage: 20 MG, QD,AFTER BREAKFAST
     Route: 065
     Dates: start: 20210927, end: 20210930
  109. SPIRONOLACTONE [Concomitant]
     Active Substance: SPIRONOLACTONE
     Indication: Product used for unknown indication
     Dosage: 1 DF, QD,AFTER BREAKFAST
     Route: 065
     Dates: start: 20210709, end: 20210711
  110. SPIRONOLACTONE [Concomitant]
     Active Substance: SPIRONOLACTONE
     Dosage: 1 DF, QD,AFTER BREAKFAST
     Route: 065
     Dates: start: 20210712, end: 20210815
  111. SPIRONOLACTONE [Concomitant]
     Active Substance: SPIRONOLACTONE
     Dosage: 1 DF, QD,AFTER BREAKFAST
     Route: 065
     Dates: start: 20210816, end: 20210905
  112. FAMOTIDINE OD ME [Concomitant]
     Indication: Product used for unknown indication
     Dosage: 1 DF, BID,AFTER BREAKFAST AND DINNER
     Route: 065
     Dates: start: 20211108

REACTIONS (3)
  - Splenic infarction [Recovered/Resolved]
  - Fall [Recovered/Resolved]
  - Ankle fracture [Recovered/Resolved]

NARRATIVE: CASE EVENT DATE: 20210709
